FAERS Safety Report 25387524 (Version 6)
Quarter: 2025Q4

REPORT INFORMATION
  Report Type: Report from Study
  Country: CO (occurrence: CO)
  Receive Date: 20250603
  Receipt Date: 20251002
  Transmission Date: 20260117
  Serious: Yes (Death, Life-Threatening, Hospitalization, Other)
  Sender: TAKEDA
  Company Number: CO-TAKEDA-2025TUS051149

PATIENT
  Age: 11 Year
  Sex: Male
  Weight: 18 kg

DRUGS (2)
  1. HUMAN IMMUNOGLOBULIN G [Suspect]
     Active Substance: HUMAN IMMUNOGLOBULIN G
     Indication: Primary immunodeficiency syndrome
     Dosage: 10 GRAM, Q4WEEKS
     Dates: start: 20241215
  2. DICLOFENAC [Concomitant]
     Active Substance: DICLOFENAC
     Dosage: UNK

REACTIONS (9)
  - Death [Fatal]
  - Pneumonia [Unknown]
  - Pulmonary hypertension [Unknown]
  - Gastrostomy tube site complication [Unknown]
  - Treatment noncompliance [Unknown]
  - Dyspnoea [Recovering/Resolving]
  - Asthenia [Recovering/Resolving]
  - Oxygen saturation decreased [Recovering/Resolving]
  - Pyrexia [Recovering/Resolving]

NARRATIVE: CASE EVENT DATE: 20250527
